FAERS Safety Report 8231600-9 (Version None)
Quarter: 2012Q1

REPORT INFORMATION
  Report Type: 
  Country: None (occurrence: None)
  Receive Date: 20120323
  Receipt Date: 20120313
  Transmission Date: 20120608
  Serious: Yes (Hospitalization, Other)
  Sender: FDA-Public Use
  Company Number: US-ELI_LILLY_AND_COMPANY-US201202006645

PATIENT
  Sex: Female

DRUGS (15)
  1. CALCITRIOL [Concomitant]
  2. AMLODIPINE [Concomitant]
  3. FUROSEMIDE [Concomitant]
  4. GABAPENTIN [Concomitant]
     Dosage: UNK, EACH EVENING
  5. CARVEDILOL [Concomitant]
  6. FORTEO [Suspect]
     Dosage: 20 UG, QD
  7. ALPRAZOLAM [Concomitant]
  8. FORTEO [Suspect]
     Indication: OSTEOPOROSIS
     Dosage: 20 UG, QD
     Dates: start: 20110501
  9. ARANESP [Concomitant]
     Indication: RENAL IMPAIRMENT
  10. CRESTOR [Concomitant]
  11. NOVOLOG [Concomitant]
  12. DOXYCIN [Concomitant]
  13. FORTEO [Suspect]
     Dosage: 20 UG, QD
  14. DIOVAN [Concomitant]
  15. RENVELA [Concomitant]

REACTIONS (3)
  - BRONCHITIS [None]
  - RENAL FAILURE [None]
  - NEOPLASM SKIN [None]
